FAERS Safety Report 20001792 (Version 1)
Quarter: 2021Q4

REPORT INFORMATION
  Report Type: Spontaneous
  Country: US (occurrence: US)
  Receive Date: 20211027
  Receipt Date: 20211027
  Transmission Date: 20220303
  Serious: No
  Sender: FDA-Public Use
  Company Number: None

PATIENT
  Sex: Female
  Weight: 72 kg

DRUGS (8)
  1. CYCLOPHOSPHAMIDE [Suspect]
     Active Substance: CYCLOPHOSPHAMIDE
     Indication: Amyloidosis
     Dosage: ?          OTHER FREQUENCY:DAYS 1.8.15.22/28;
     Route: 048
     Dates: start: 20210317
  2. DEXAMETHASONE [Suspect]
     Active Substance: DEXAMETHASONE
     Indication: Amyloidosis
     Dosage: ?          OTHER FREQUENCY:Q 15 DAYS;
     Route: 048
     Dates: start: 20210823
  3. ATIVAN [Concomitant]
     Active Substance: LORAZEPAM
  4. ESTRADIOL [Concomitant]
     Active Substance: ESTRADIOL
  5. LYRICA [Concomitant]
     Active Substance: PREGABALIN
  6. MIDODRINE [Concomitant]
     Active Substance: MIDODRINE
  7. VITAMINS [Concomitant]
     Active Substance: VITAMINS
  8. Nortriptylline [Concomitant]

REACTIONS (1)
  - Weight increased [None]
